FAERS Safety Report 7371185-2 (Version None)
Quarter: 2011Q1

REPORT INFORMATION
  Report Type: 
  Country: None (occurrence: None)
  Receive Date: 20110324
  Receipt Date: 20110315
  Transmission Date: 20110831
  Serious: Yes (Hospitalization, Other)
  Sender: FDA-Public Use
  Company Number: FR-ASTELLAS-2011EU001400

PATIENT
  Sex: Female

DRUGS (4)
  1. COVERSYL [Suspect]
     Indication: HYPERTENSION
     Dosage: UNK
     Route: 048
     Dates: start: 20090501, end: 20100101
  2. RAPAMUNE [Suspect]
     Indication: PANCREAS ISLET CELL TRANSPLANT
     Dosage: 9 MG, UID/QD
     Route: 048
     Dates: start: 20090201, end: 20100101
  3. KARDEGIC [Suspect]
     Indication: ISCHAEMIC STROKE
     Dosage: 75 MG, UID/QD
     Route: 048
     Dates: start: 20030101, end: 20100101
  4. PROGRAF [Suspect]
     Indication: PANCREAS ISLET CELL TRANSPLANT
     Dosage: 3 DF, BID
     Route: 048
     Dates: start: 20090201, end: 20100101

REACTIONS (5)
  - THROMBOTIC MICROANGIOPATHY [None]
  - DIARRHOEA [None]
  - ABDOMINAL PAIN [None]
  - OVERDOSE [None]
  - RENAL FAILURE ACUTE [None]
